FAERS Safety Report 19454384 (Version 1)
Quarter: 2021Q2

REPORT INFORMATION
  Report Type: Spontaneous
  Country: US (occurrence: US)
  Receive Date: 20210623
  Receipt Date: 20210623
  Transmission Date: 20210717
  Serious: No
  Sender: FDA-Public Use
  Company Number: US-GE HEALTHCARE LIFE SCIENCES-2021CSU001561

PATIENT
  Age: 13 Year

DRUGS (5)
  1. DMSA [Suspect]
     Active Substance: SUCCIMER
     Indication: RADIOISOTOPE SCAN
     Dosage: UNK, SINGLE
     Route: 065
  2. CHLORHEXIDINE [Suspect]
     Active Substance: CHLORHEXIDINE
     Indication: INFECTION PROPHYLAXIS
     Dosage: TO STERILIZE THE RUBBER STOPPER ON THE DMSA VIAL
     Route: 050
  3. DMSA [Suspect]
     Active Substance: SUCCIMER
     Indication: KIDNEY SMALL
  4. TECHNETIUM TC 99M [Concomitant]
     Active Substance: TECHNETIUM TC-99M
  5. GLYCOLAX [Concomitant]
     Active Substance: POLYETHYLENE GLYCOL 3350
     Dosage: UNK, PRN

REACTIONS (4)
  - Radioisotope scan abnormal [Recovered/Resolved]
  - Product contamination [Recovered/Resolved]
  - Drug interaction [Recovered/Resolved]
  - No adverse event [Recovered/Resolved]
